FAERS Safety Report 8101853-6 (Version None)
Quarter: 2012Q1

REPORT INFORMATION
  Report Type: 
  Country: None (occurrence: None)
  Receive Date: 20120131
  Receipt Date: 20120124
  Transmission Date: 20120608
  Serious: Yes (Hospitalization, Other)
  Sender: FDA-Public Use
  Company Number: DE-PFIZER INC-2009262195

PATIENT
  Age: 79 Year
  Sex: Male
  Weight: 83.5 kg

DRUGS (14)
  1. ACC LONG [Concomitant]
     Indication: CHRONIC OBSTRUCTIVE PULMONARY DISEASE
     Dosage: 600 MG, 1X/DAY
     Route: 048
     Dates: start: 20090801
  2. RAMIPRIL [Suspect]
     Indication: HYPERTENSION
     Dosage: 2.5 MG, 1X/DAY
     Route: 048
     Dates: start: 20070101, end: 20090819
  3. LEVOTHYROXINE SODIUM [Concomitant]
     Indication: HYPOTHYROIDISM
     Dosage: 50 UG, 1X/DAY
     Route: 048
     Dates: start: 20070101
  4. LYRICA [Suspect]
     Indication: PAIN
     Dosage: 150 MG, 2X/DAY
     Route: 048
     Dates: start: 20070601
  5. TRIAMCINOLONE ACETONIDE [Suspect]
     Indication: SEASONAL ALLERGY
     Dosage: 0.2 G, 1X/DAY
     Route: 045
     Dates: start: 20090801
  6. BIFITERAL ^PHILIPS^ [Concomitant]
     Indication: CONSTIPATION
     Dosage: 5 G, 1X/DAY
     Route: 048
     Dates: start: 20070101
  7. TORSEMIDE [Concomitant]
     Indication: HYPERTENSION
     Dosage: 5 MG, 1X/DAY
     Route: 048
     Dates: start: 20070501
  8. AGGRENOX [Suspect]
     Indication: THROMBOSIS PROPHYLAXIS
     Dosage: 1 DF, 2X/DAY
     Dates: start: 20080801
  9. MIRTAZAPINE [Concomitant]
     Indication: DEPRESSION
     Dosage: 15 MG, 1X/DAY
     Route: 048
     Dates: start: 20070101
  10. SIMVASTATIN [Concomitant]
     Indication: HYPERCHOLESTEROLAEMIA
     Dosage: 40 MG, 1X/DAY
     Dates: start: 20070101
  11. NEXIUM [Suspect]
     Indication: GASTRITIS
     Dosage: 20 MG, 1X/DAY
     Route: 048
     Dates: start: 20010101
  12. ASPIRIN [Suspect]
     Indication: CORONARY ARTERY DISEASE
     Dosage: 50 MG, 1X/DAY
     Route: 048
     Dates: start: 19950101
  13. SPIRIVA [Suspect]
     Indication: CHRONIC OBSTRUCTIVE PULMONARY DISEASE
     Dosage: 18 UG, 1X/DAY
     Route: 055
     Dates: start: 19800101
  14. NALOXONE/OXYCODONE [Concomitant]
     Indication: PAIN
     Dosage: 10 MG OXYCODON, 5 MG NALOXON, 2X/DAY
     Route: 048
     Dates: start: 20070101

REACTIONS (7)
  - HYPERTENSIVE CRISIS [None]
  - ASPARTATE AMINOTRANSFERASE INCREASED [None]
  - DIZZINESS [None]
  - DYSPNOEA [None]
  - HEADACHE [None]
  - ANGIOEDEMA [None]
  - PROTHROMBIN TIME PROLONGED [None]
